FAERS Safety Report 4773245-9 (Version None)
Quarter: 2005Q3

REPORT INFORMATION
  Report Type: 
  Country: None (occurrence: None)
  Receive Date: 20050916
  Receipt Date: 20050909
  Transmission Date: 20060218
  Serious: Yes (Hospitalization, Other)
  Sender: FDA-Public Use
  Company Number: KII-2005-0018610

PATIENT
  Age: 57 Year
  Sex: Male

DRUGS (10)
  1. MORPHINE SULFATE [Suspect]
     Indication: BACK PAIN
     Dosage: ORAL
     Route: 048
  2. QUETIAPINE FUMARATE [Suspect]
     Dosage: ORAL
     Route: 048
  3. ATENOLOL [Suspect]
     Dosage: ORAL
     Route: 048
  4. TRAZODONE HCL [Suspect]
     Dosage: ORAL
     Route: 048
  5. BARBITURATES [Suspect]
  6. BENZODIAZEPINE DERIVATIVES [Suspect]
  7. SSRI [Suspect]
     Dosage: ORAL
     Route: 048
  8. MELOXICAM (MELOXICAM) [Suspect]
     Dosage: ORAL
     Route: 048
  9. FELODIPINE [Suspect]
     Dosage: ORAL
     Route: 048
  10. TACROLIMUS (TACROLIMUS) [Suspect]
     Dosage: ORAL
     Route: 048

REACTIONS (13)
  - AGITATION [None]
  - ALANINE AMINOTRANSFERASE INCREASED [None]
  - ASPARTATE AMINOTRANSFERASE INCREASED [None]
  - ASPIRATION [None]
  - BLOOD PRESSURE DECREASED [None]
  - COMA [None]
  - CONFUSIONAL STATE [None]
  - CONVULSION [None]
  - DRUG DEPENDENCE [None]
  - ELECTROCARDIOGRAM QT CORRECTED INTERVAL PROLONGED [None]
  - POLYSUBSTANCE ABUSE [None]
  - SELF-MEDICATION [None]
  - VOMITING [None]
